FAERS Safety Report 5151525-5 (Version None)
Quarter: 2006Q4

REPORT INFORMATION
  Report Type: 
  Country: None (occurrence: None)
  Receive Date: 20061114
  Receipt Date: 20061114
  Transmission Date: 20070319
  Serious: Yes (Life-Threatening)
  Sender: FDA-Public Use
  Company Number: None

PATIENT
  Sex: Female
  Weight: 103 kg

DRUGS (3)
  1. VANCOMYCIN [Suspect]
     Indication: STAPHYLOCOCCAL INFECTION
     Dosage: 1.5 G Q12 H IV
     Route: 042
     Dates: start: 20060828, end: 20060913
  2. VANCOMYCIN [Suspect]
  3. VANCOMYCIN [Suspect]

REACTIONS (1)
  - THROMBOCYTOPENIA [None]
